FAERS Safety Report 6275145-4 (Version None)
Quarter: 2009Q3

REPORT INFORMATION
  Report Type: 
  Country: None (occurrence: None)
  Receive Date: 20090721
  Receipt Date: 20090709
  Transmission Date: 20100115
  Serious: Yes (Hospitalization, Other)
  Sender: FDA-Public Use
  Company Number: JP-PFIZER INC-2009223499

PATIENT
  Age: 53 Year

DRUGS (6)
  1. ZOLOFT [Suspect]
     Dosage: 50 MG/DAY
     Route: 048
     Dates: start: 20090416, end: 20090501
  2. AMOXAN [Suspect]
     Dosage: 150 MG, 3X/DAY
     Dates: start: 20090416
  3. NOCBIN [Suspect]
     Dosage: 0.3 MG
     Dates: start: 20090416
  4. ROHYPNOL [Suspect]
     Dosage: 2 MG, 1X/DAY
     Route: 048
     Dates: start: 20090416
  5. MEILAX [Suspect]
     Dosage: 0.5 MG, 1X/DAY
     Dates: start: 20090416
  6. FAMOTIDINE [Concomitant]
     Route: 048

REACTIONS (3)
  - BACK PAIN [None]
  - CONVULSION [None]
  - LOSS OF CONSCIOUSNESS [None]
